FAERS Safety Report 5515391-8 (Version None)
Quarter: 2007Q4

REPORT INFORMATION
  Report Type: 
  Country: None (occurrence: None)
  Receive Date: 20071109
  Receipt Date: 20071031
  Transmission Date: 20080405
  Serious: Yes (Other)
  Sender: FDA-Public Use
  Company Number: THQ2007A00913

PATIENT
  Age: 49 Year
  Sex: Female

DRUGS (9)
  1. ACTOS [Suspect]
     Indication: TYPE 2 DIABETES MELLITUS
     Dosage: 15 MG ; 30 MG
     Dates: start: 20050901, end: 20051001
  2. ACTOS [Suspect]
     Indication: TYPE 2 DIABETES MELLITUS
     Dosage: 15 MG ; 30 MG
     Dates: start: 20051001, end: 20060801
  3. DIOVAN (HYDROCHLOROTHIAZIDE, VALSARTAN) [Concomitant]
  4. PRAVACHOL [Concomitant]
  5. EZETROL (EZETIMIBE) [Concomitant]
  6. DITROPAN [Concomitant]
  7. ASPIRIN [Concomitant]
  8. VENTOLIN /SCH/ (SALBUTAMOL SULFATE) [Concomitant]
  9. PROLOPRIM [Concomitant]

REACTIONS (2)
  - DIZZINESS [None]
  - DYSPNOEA [None]
